FAERS Safety Report 5899884-X (Version None)
Quarter: 2008Q3

REPORT INFORMATION
  Report Type: 
  Country: None (occurrence: None)
  Receive Date: 20080925
  Receipt Date: 20080925
  Transmission Date: 20090109
  Serious: Yes (Other)
  Sender: FDA-Public Use
  Company Number: None

PATIENT
  Age: 59 Year
  Sex: Female
  Weight: 63.5036 kg

DRUGS (2)
  1. LYRICA [Suspect]
     Indication: FIBROMYALGIA
     Dosage: 75 MG 3 X PO
     Route: 048
     Dates: start: 20080818, end: 20080829
  2. LYRICA [Suspect]
     Indication: SCIATICA

REACTIONS (10)
  - ABNORMAL BEHAVIOUR [None]
  - APHASIA [None]
  - BURNING SENSATION [None]
  - CONFUSIONAL STATE [None]
  - FALL [None]
  - HALLUCINATION [None]
  - NAUSEA [None]
  - PAIN IN EXTREMITY [None]
  - SCIATICA [None]
  - SKIN DISCOLOURATION [None]
